FAERS Safety Report 23647472 (Version 1)
Quarter: 2024Q1

REPORT INFORMATION
  Report Type: Spontaneous
  Country: US (occurrence: US)
  Receive Date: 20240319
  Receipt Date: 20240319
  Transmission Date: 20240410
  Serious: Yes (Hospitalization, Other)
  Sender: FDA-Public Use
  Company Number: US-AVADEL CNS PHARMACEUTICALS, LLC-2024AVA00372

PATIENT
  Sex: Female

DRUGS (10)
  1. LUMRYZ [Suspect]
     Active Substance: SODIUM OXYBATE
     Indication: Narcolepsy
     Dosage: 9 G, EACH NIGHT AT BEDTIME
     Route: 048
     Dates: start: 202312
  2. FLUCONAZOLE [Concomitant]
     Active Substance: FLUCONAZOLE
  3. EFFEXOR XR [Concomitant]
     Active Substance: VENLAFAXINE HYDROCHLORIDE
  4. VITAMIN D NOS [Concomitant]
     Active Substance: VITAMIN D NOS
  5. PROBIOTIC ACIDOPHILUS [LACTOBACILLUS ACIDOPHILUS] [Concomitant]
  6. FISH OIL [Concomitant]
     Active Substance: FISH OIL
  7. VITAMINS NOS [Concomitant]
     Active Substance: VITAMINS
  8. LOW-OGESTREL [Concomitant]
     Active Substance: ETHINYL ESTRADIOL\NORGESTREL
  9. BIOTIN [Concomitant]
     Active Substance: BIOTIN
  10. PROPRANOLOL HYDROCHLORIDE [Concomitant]
     Active Substance: PROPRANOLOL HYDROCHLORIDE

REACTIONS (2)
  - Jaw operation [Unknown]
  - Hospitalisation [Not Recovered/Not Resolved]
